FAERS Safety Report 6822592-5 (Version None)
Quarter: 2010Q3

REPORT INFORMATION
  Report Type: 
  Country: None (occurrence: None)
  Receive Date: 20100708
  Receipt Date: 20100625
  Transmission Date: 20110219
  Serious: Yes (Disabling, Other)
  Sender: FDA-Public Use
  Company Number: GB-ELI_LILLY_AND_COMPANY-GB201006007432

PATIENT
  Age: 15 Year
  Sex: Female
  Weight: 55 kg

DRUGS (2)
  1. PROZAC [Suspect]
     Indication: DEPRESSED MOOD
     Dosage: 20 MG, UNK
     Route: 048
     Dates: start: 20100326, end: 20100501
  2. PROZAC [Suspect]
     Dosage: UNK, UNKNOWN
     Route: 065

REACTIONS (7)
  - ARTHRALGIA [None]
  - ASTHENIA [None]
  - HYPOAESTHESIA [None]
  - MYALGIA [None]
  - PAIN IN EXTREMITY [None]
  - RASH [None]
  - VERTIGO [None]
